FAERS Safety Report 4744007-3 (Version None)
Quarter: 2005Q3

REPORT INFORMATION
  Report Type: 
  Country: None (occurrence: None)
  Receive Date: 20050809
  Receipt Date: 20050726
  Transmission Date: 20060218
  Serious: No
  Sender: FDA-Public Use
  Company Number: IT-2005-015501

PATIENT
  Age: 26 Year
  Sex: Female

DRUGS (1)
  1. MIRANOVA (21) (ETHINYLESTRADIOL, LEVONORGESTREL) [Suspect]
     Indication: CONTRACEPTION

REACTIONS (3)
  - ANGIONEUROTIC OEDEMA [None]
  - DRUG HYPERSENSITIVITY [None]
  - PARAESTHESIA [None]
